FAERS Safety Report 9230228 (Version 2)
Quarter: 2013Q2

REPORT INFORMATION
  Report Type: Spontaneous
  Country: US (occurrence: US)
  Receive Date: 20130415
  Receipt Date: 20130529
  Transmission Date: 20140414
  Serious: Yes (Other)
  Sender: FDA-Public Use
  Company Number: US-TEVA-397497USA

PATIENT
  Sex: Female

DRUGS (1)
  1. PROAIR HFA [Suspect]

REACTIONS (5)
  - Coeliac disease [Unknown]
  - Gastric mucosa erythema [Unknown]
  - Diverticulum [Unknown]
  - Gastric polyps [Unknown]
  - Haemorrhoids [Unknown]
